FAERS Safety Report 21697391 (Version 3)
Quarter: 2022Q4

REPORT INFORMATION
  Report Type: Spontaneous
  Country: PR (occurrence: PR)
  Receive Date: 20221208
  Receipt Date: 20221226
  Transmission Date: 20230113
  Serious: No
  Sender: FDA-Public Use
  Company Number: PR-JNJFOC-20221208063

PATIENT
  Age: 80 Year
  Sex: Male

DRUGS (2)
  1. ERLEADA [Suspect]
     Active Substance: APALUTAMIDE
     Indication: Prostate cancer
     Dosage: 4 TABLETS DAILY
     Route: 048
     Dates: end: 202209
  2. ERLEADA [Suspect]
     Active Substance: APALUTAMIDE
     Dosage: 2 TABLETS DAILY
     Route: 048
     Dates: end: 202209

REACTIONS (4)
  - Rash [Recovered/Resolved]
  - Dry skin [Recovering/Resolving]
  - Blood pressure measurement [Not Recovered/Not Resolved]
  - Palpitations [Not Recovered/Not Resolved]

NARRATIVE: CASE EVENT DATE: 20220901
